FAERS Safety Report 23663362 (Version 1)
Quarter: 2024Q1

REPORT INFORMATION
  Report Type: Spontaneous
  Country: CN (occurrence: CN)
  Receive Date: 20240322
  Receipt Date: 20240322
  Transmission Date: 20240409
  Serious: Yes (Hospitalization, Other)
  Sender: FDA-Public Use
  Company Number: CN-ANIPHARMA-2024-CN-000077

PATIENT
  Age: 27 Year
  Sex: Female
  Weight: 80 kg

DRUGS (4)
  1. FLUVOXAMINE [Suspect]
     Active Substance: FLUVOXAMINE
     Indication: Product used for unknown indication
     Dosage: 50.0 DOSAGE FORM (50 DOSAGE FORM, 1 IN 1 DAY)
     Route: 048
     Dates: start: 20240214, end: 20240214
  2. FLUOXETINE HYDROCHLORIDE [Suspect]
     Active Substance: FLUOXETINE HYDROCHLORIDE
     Dosage: 50.0 DOSAGE FORM (50 DOSAGE FORM, 1 IN 1 DAY)
     Route: 048
     Dates: start: 20240214, end: 20240214
  3. DULOXETINE HYDROCHLORIDE [Suspect]
     Active Substance: DULOXETINE HYDROCHLORIDE
     Dosage: 50.0 DOSAGE FORM (50 DOSAGE FORM, 1 IN 1 DAY)
     Route: 048
     Dates: start: 20240214, end: 20240214
  4. LAMOTRIGINE [Suspect]
     Active Substance: LAMOTRIGINE
     Dosage: 50.0 DOSAGE FORM (50 DOSAGE FORM, 1 IN 1 DAY)
     Route: 048

REACTIONS (10)
  - Renal failure [Recovering/Resolving]
  - Disorganised speech [Unknown]
  - Suicide attempt [Unknown]
  - Somnolence [Recovering/Resolving]
  - Blood creatine phosphokinase increased [Recovering/Resolving]
  - Nausea [Unknown]
  - Vomiting [Unknown]
  - Asthenia [Unknown]
  - Coordination abnormal [Unknown]
  - Hallucination [Unknown]

NARRATIVE: CASE EVENT DATE: 20240214
